FAERS Safety Report 8064186-2 (Version None)
Quarter: 2011Q4

REPORT INFORMATION
  Report Type: 
  Country: None (occurrence: None)
  Receive Date: 20111221
  Receipt Date: 20110414
  Transmission Date: 20120403
  Serious: Yes (Other)
  Sender: FDA-Public Use
  Company Number: 2011S1000031

PATIENT
  Sex: Male

DRUGS (7)
  1. KRYSTEXXA [Suspect]
     Indication: GOUT
     Dosage: 8 MG;X1; IV
     Route: 042
     Dates: start: 20110401, end: 20110401
  2. KRYSTEXXA [Suspect]
     Indication: GOUT
     Dosage: 8 MG;X1; IV
     Route: 042
     Dates: start: 20110401, end: 20110401
  3. KRYSTEXXA [Suspect]
     Indication: GOUT
     Dosage: 8 MG;X1; IV
     Route: 042
     Dates: start: 20110310, end: 20110310
  4. PREDNISONE [Concomitant]
  5. SOLU-MEDROL [Concomitant]
  6. ALLEGRA [Concomitant]
  7. ULORIC [Concomitant]

REACTIONS (1)
  - INFUSION RELATED REACTION [None]
